FAERS Safety Report 6303059-X (Version None)
Quarter: 2009Q3

REPORT INFORMATION
  Report Type: 
  Country: None (occurrence: None)
  Receive Date: 20090810
  Receipt Date: 20090731
  Transmission Date: 20100115
  Serious: No
  Sender: FDA-Public Use
  Company Number: US-BAYER-200928754NA

PATIENT

DRUGS (2)
  1. MAGNEVIST [Suspect]
     Indication: ANGIOGRAM
     Dosage: TOTAL DAILY DOSE: 40 ML
     Route: 042
     Dates: start: 20090615, end: 20090615
  2. ATIVAN [Concomitant]
     Dosage: TOOK ATIVAN BEFORE PROCEDURE

REACTIONS (1)
  - PRURITUS [None]
